FAERS Safety Report 25958812 (Version 1)
Quarter: 2025Q4

REPORT INFORMATION
  Report Type: Report from Study
  Country: US (occurrence: US)
  Receive Date: 20251025
  Receipt Date: 20251025
  Transmission Date: 20260117
  Serious: Yes (Life-Threatening, Hospitalization)
  Sender: ALEXION PHARMACEUTICALS
  Company Number: 202510NAM020231US

PATIENT
  Age: 64 Year
  Sex: Female

DRUGS (1)
  1. STRENSIQ [Suspect]
     Active Substance: ASFOTASE ALFA
     Indication: Phosphorus metabolism disorder
     Dosage: INJECT 80 MG SIX TIMES PER WEEK AS DIRECTED. ROTATE INJECTION SITES
     Route: 065

REACTIONS (7)
  - Gangrene [Unknown]
  - Foot fracture [Unknown]
  - Cardiac arrest [Unknown]
  - Calcinosis [Unknown]
  - Fall [Unknown]
  - Blood urea increased [Unknown]
  - Blood urine [Unknown]

NARRATIVE: CASE EVENT DATE: 20241201
